FAERS Safety Report 8080111-2 (Version None)
Quarter: 2012Q1

REPORT INFORMATION
  Report Type: 
  Country: None (occurrence: None)
  Receive Date: 20120129
  Receipt Date: 20111031
  Transmission Date: 20120608
  Serious: Yes (Life-Threatening, Other)
  Sender: FDA-Public Use
  Company Number: US-ABBOTT-11P-163-0869564-00

PATIENT
  Sex: Male

DRUGS (1)
  1. HUMIRA [Suspect]
     Indication: CROHN'S DISEASE
     Dates: start: 20080901

REACTIONS (11)
  - NECK PAIN [None]
  - CHORDOMA [None]
  - HYPOAESTHESIA [None]
  - EMOTIONAL DISTRESS [None]
  - NEOPLASM MALIGNANT [None]
  - MUSCULOSKELETAL PAIN [None]
  - FEELINGS OF WORTHLESSNESS [None]
  - PAIN [None]
  - BACK PAIN [None]
  - MUSCULAR WEAKNESS [None]
  - ANHEDONIA [None]
